FAERS Safety Report 5147356-2 (Version None)
Quarter: 2006Q4

REPORT INFORMATION
  Report Type: 
  Country: None (occurrence: None)
  Receive Date: 20061103
  Receipt Date: 20061024
  Transmission Date: 20070319
  Serious: Yes (Hospitalization)
  Sender: FDA-Public Use
  Company Number: RB-4251-2006

PATIENT
  Age: 20 Year
  Sex: Male

DRUGS (3)
  1. SUBOXONE [Suspect]
     Dosage: 4MG 1X SUBLINGUAL, 4MG 3X SUBLINGUAL, 2X SUBLINGUAL
     Route: 060
     Dates: start: 20061019, end: 20061019
  2. SUBOXONE [Suspect]
     Dosage: 4MG 1X SUBLINGUAL, 4MG 3X SUBLINGUAL, 2X SUBLINGUAL
     Route: 060
     Dates: start: 20061020, end: 20061020
  3. SUBOXONE [Suspect]
     Dosage: 4MG 1X SUBLINGUAL, 4MG 3X SUBLINGUAL, 2X SUBLINGUAL
     Route: 060
     Dates: start: 20061021, end: 20061023

REACTIONS (1)
  - CONVULSION [None]
